FAERS Safety Report 15033901 (Version 2)
Quarter: 2018Q3

REPORT INFORMATION
  Report Type: Spontaneous
  Country: DE (occurrence: DE)
  Receive Date: 20180620
  Receipt Date: 20180705
  Transmission Date: 20181010
  Serious: Yes (Other)
  Sender: FDA-Public Use
  Company Number: DE-ROCHE-2141193

PATIENT
  Sex: Female

DRUGS (1)
  1. ATEZOLIZUMAB. [Suspect]
     Active Substance: ATEZOLIZUMAB
     Indication: BREAST CANCER METASTATIC
     Route: 065

REACTIONS (1)
  - Optic atrophy [Not Recovered/Not Resolved]
